FAERS Safety Report 5788401-0 (Version None)
Quarter: 2008Q2

REPORT INFORMATION
  Report Type: 
  Country: None (occurrence: None)
  Receive Date: 20080620
  Receipt Date: 20080603
  Transmission Date: 20081010
  Serious: Yes (Other)
  Sender: FDA-Public Use
  Company Number: SPV1-2008-01234

PATIENT
  Sex: 0

DRUGS (1)
  1. VYVANSE [Suspect]
     Dosage: ORAL
     Route: 048

REACTIONS (2)
  - CONVULSION [None]
  - HALLUCINATION [None]
